FAERS Safety Report 18931340 (Version 1)
Quarter: 2021Q1

REPORT INFORMATION
  Report Type: Spontaneous
  Country: SE (occurrence: SE)
  Receive Date: 20210223
  Receipt Date: 20210223
  Transmission Date: 20210420
  Serious: No
  Sender: FDA-Public Use
  Company Number: SE-JAZZ-2020-SE-018216

PATIENT
  Sex: Female
  Weight: 90 kg

DRUGS (2)
  1. XYREM [Suspect]
     Active Substance: SODIUM OXYBATE
     Indication: NARCOLEPSY
     Dosage: 9 GRAM PER NIGHT
     Route: 048
     Dates: start: 2013
  2. XYREM [Suspect]
     Active Substance: SODIUM OXYBATE
     Indication: CATAPLEXY

REACTIONS (4)
  - Enuresis [Recovered/Resolved]
  - Sleep-related eating disorder [Recovering/Resolving]
  - Abnormal sleep-related event [Not Recovered/Not Resolved]
  - Appetite disorder [Not Recovered/Not Resolved]
